FAERS Safety Report 9380326 (Version 1)
Quarter: 2013Q3

REPORT INFORMATION
  Report Type: Spontaneous
  Country: US (occurrence: US)
  Receive Date: 20130702
  Receipt Date: 20130702
  Transmission Date: 20140515
  Serious: Yes (Other)
  Sender: FDA-Public Use
  Company Number: US-GLAXOSMITHKLINE-A0869022A

PATIENT
  Age: 76 Year
  Sex: Male

DRUGS (1)
  1. AVANDIA [Suspect]
     Indication: DIABETES MELLITUS
     Dosage: 4MG PER DAY
     Route: 048
     Dates: start: 20000525, end: 200708

REACTIONS (6)
  - Cardiac failure congestive [Not Recovered/Not Resolved]
  - Polymyalgia rheumatica [Unknown]
  - Cardiac pacemaker insertion [Unknown]
  - Arrhythmia [Unknown]
  - Cerebrovascular accident [Unknown]
  - Transient ischaemic attack [Unknown]
